FAERS Safety Report 18400654 (Version 3)
Quarter: 2020Q4

REPORT INFORMATION
  Report Type: Spontaneous
  Country: JP (occurrence: JP)
  Receive Date: 20201019
  Receipt Date: 20201111
  Transmission Date: 20210114
  Serious: Yes (Other)
  Sender: FDA-Public Use
  Company Number: JP-JNJFOC-20201020742

PATIENT
  Age: 80 Decade
  Sex: Male

DRUGS (4)
  1. UPTRAVI [Suspect]
     Active Substance: SELEXIPAG
     Route: 048
     Dates: start: 202008, end: 20200911
  2. OPSUMIT [Concomitant]
     Active Substance: MACITENTAN
  3. ADCIRCA [Concomitant]
     Active Substance: TADALAFIL
  4. UPTRAVI [Suspect]
     Active Substance: SELEXIPAG
     Indication: PRODUCT USED FOR UNKNOWN INDICATION
     Route: 048
     Dates: start: 202005

REACTIONS (1)
  - Pleural effusion [Recovering/Resolving]

NARRATIVE: CASE EVENT DATE: 20200901
